FAERS Safety Report 18975212 (Version 2)
Quarter: 2021Q2

REPORT INFORMATION
  Report Type: Report from Study
  Country: US (occurrence: US)
  Receive Date: 20210305
  Receipt Date: 20210428
  Transmission Date: 20210717
  Serious: Yes (Other)
  Sender: FDA-Public Use
  Company Number: US-OTSUKA-2021_003238AA

PATIENT
  Sex: Male
  Weight: 75.3 kg

DRUGS (1)
  1. ASTX727 [Suspect]
     Active Substance: CEDAZURIDINE\DECITABINE
     Indication: MYELODYSPLASTIC SYNDROME
     Dosage: 135 MG (35 MG DECITABINE AND 100 MG CEDAZURIDINE), QD
     Route: 065
     Dates: start: 20210122

REACTIONS (8)
  - Red blood cell count decreased [Unknown]
  - White blood cell count decreased [Unknown]
  - Yellow skin [Unknown]
  - Full blood count decreased [Unknown]
  - Heart rate increased [Unknown]
  - Refusal of treatment by patient [Unknown]
  - General physical health deterioration [Unknown]
  - Asthenia [Unknown]
